FAERS Safety Report 9661214 (Version 1)
Quarter: 2013Q4

REPORT INFORMATION
  Report Type: Spontaneous
  Country: US (occurrence: None)
  Receive Date: 20131030
  Receipt Date: 20131030
  Transmission Date: 20140711
  Serious: No
  Sender: FDA-Public Use
  Company Number: 13AE023

PATIENT
  Sex: Female

DRUGS (3)
  1. DOXYLAMINE SUCCINATE [Suspect]
     Dates: start: 20130918
  2. CETIRIZINE HCL [Concomitant]
  3. PENICILLIN [Concomitant]

REACTIONS (3)
  - Drug dispensing error [None]
  - Urticaria contact [None]
  - Dermatitis allergic [None]
